FAERS Safety Report 6690145-8 (Version None)
Quarter: 2010Q2

REPORT INFORMATION
  Report Type: 
  Country: None (occurrence: None)
  Receive Date: 20100421
  Receipt Date: 20100409
  Transmission Date: 20101027
  Serious: Yes (Life-Threatening, Hospitalization)
  Sender: FDA-Public Use
  Company Number: ES-WYE-H14619810

PATIENT
  Age: 76 Year
  Sex: Female

DRUGS (6)
  1. AMIODARONE HCL [Suspect]
     Indication: ATRIAL FIBRILLATION
     Route: 048
     Dates: start: 20070101, end: 20081019
  2. CARDISER - SLOW RELEASE [Concomitant]
  3. SERTRALINE HCL [Interacting]
     Route: 048
     Dates: start: 20080601, end: 20081019
  4. DIGOXIN [Concomitant]
     Dosage: UNKNOWN
     Route: 065
     Dates: start: 20070101
  5. LEVOTHYROXINE SODIUM [Interacting]
     Indication: HYPOTHYROIDISM
     Route: 048
  6. ALDOCUMAR [Interacting]
     Indication: ATRIAL FIBRILLATION
     Dosage: UNKNOWN
     Route: 048
     Dates: start: 20080701, end: 20081019

REACTIONS (2)
  - CEREBRAL HAEMATOMA [None]
  - DRUG INTERACTION [None]
